FAERS Safety Report 5848301-4 (Version None)
Quarter: 2008Q3

REPORT INFORMATION
  Report Type: 
  Country: None (occurrence: None)
  Receive Date: 20080818
  Receipt Date: 20080804
  Transmission Date: 20090109
  Serious: Yes (Death)
  Sender: FDA-Public Use
  Company Number: GB-MERCK-0712GBR00045

PATIENT
  Age: 14 Year
  Sex: Male
  Weight: 75 kg

DRUGS (3)
  1. CANCIDAS [Suspect]
     Indication: ANTIFUNGAL TREATMENT
     Route: 041
     Dates: start: 20041201, end: 20041216
  2. VORICONAZOLE [Suspect]
     Indication: ANTIFUNGAL TREATMENT
     Route: 042
     Dates: start: 20041201, end: 20041201
  3. VORICONAZOLE [Suspect]
     Route: 042
     Dates: start: 20041202, end: 20041216

REACTIONS (3)
  - DRUG INEFFECTIVE [None]
  - INFECTION [None]
  - MULTI-ORGAN FAILURE [None]
